FAERS Safety Report 23281454 (Version 1)
Quarter: 2023Q4

REPORT INFORMATION
  Report Type: Spontaneous
  Country: US (occurrence: US)
  Receive Date: 20231211
  Receipt Date: 20231211
  Transmission Date: 20240109
  Serious: Yes (Hospitalization)
  Sender: FDA-Public Use
  Company Number: US-BRISTOL-MYERS SQUIBB COMPANY-2023-177422

PATIENT
  Age: 64 Year
  Sex: Male
  Weight: 113.4 kg

DRUGS (1)
  1. REVLIMID [Suspect]
     Active Substance: LENALIDOMIDE
     Indication: Plasma cell myeloma
     Dosage: FREQUENCY- 2WKS ON, 1WK OFF
     Route: 048

REACTIONS (5)
  - Accident [Recovering/Resolving]
  - Fall [Recovering/Resolving]
  - Peripheral swelling [Recovering/Resolving]
  - Localised infection [Recovering/Resolving]
  - Off label use [Unknown]
